FAERS Safety Report 4658667-9 (Version None)
Quarter: 2005Q2

REPORT INFORMATION
  Report Type: 
  Country: None (occurrence: None)
  Receive Date: 20050511
  Receipt Date: 20050506
  Transmission Date: 20051028
  Serious: Yes (Death)
  Sender: FDA-Public Use
  Company Number: PHHO2005ES07281

PATIENT
  Age: 61 Year
  Sex: Male

DRUGS (2)
  1. MYCOPHENOLATE MOFETIL [Suspect]
     Dosage: 1500 MG/DAY
     Dates: start: 20020607
  2. NEORAL [Suspect]
     Dosage: 100 MG/DAY
     Dates: start: 20000128

REACTIONS (2)
  - COLON CANCER [None]
  - RENAL CELL CARCINOMA STAGE UNSPECIFIED [None]
